FAERS Safety Report 10671043 (Version 3)
Quarter: 2015Q1

REPORT INFORMATION
  Report Type: Spontaneous
  Country: US (occurrence: US)
  Receive Date: 20141223
  Receipt Date: 20150316
  Transmission Date: 20150720
  Serious: Yes (Death)
  Sender: FDA-Public Use
  Company Number: US-PFIZER INC-2014351754

PATIENT

DRUGS (1)
  1. CAMPTOSAR [Suspect]
     Active Substance: IRINOTECAN HYDROCHLORIDE
     Indication: BRAIN NEOPLASM
     Dosage: UNK
     Route: 042
     Dates: start: 20140319, end: 20140812

REACTIONS (4)
  - Product use issue [Unknown]
  - Brain neoplasm [Unknown]
  - Death [Fatal]
  - Disease progression [Unknown]
